FAERS Safety Report 8129879-7 (Version None)
Quarter: 2012Q1

REPORT INFORMATION
  Report Type: 
  Country: None (occurrence: None)
  Receive Date: 20120210
  Receipt Date: 20111012
  Transmission Date: 20120608
  Serious: No
  Sender: FDA-Public Use
  Company Number: US-COVIDIEN/TYCO HEALTHCARE/MALLINCKRODT-T201102702

PATIENT
  Age: 68 Year
  Sex: Male

DRUGS (2)
  1. PENNSAID [Suspect]
     Indication: PLANTAR FASCIITIS
     Dosage: 20 DROPS TO THE HEEL TWICE DAILY
     Route: 061
  2. MULTIVITAMIN                       /00097801/ [Concomitant]

REACTIONS (1)
  - INFLUENZA [None]
